FAERS Safety Report 5093587-X (Version None)
Quarter: 2006Q3

REPORT INFORMATION
  Report Type: 
  Country: None (occurrence: None)
  Receive Date: 20060829
  Receipt Date: 20060814
  Transmission Date: 20061208
  Serious: Yes (Death)
  Sender: FDA-Public Use
  Company Number: US200606002404

PATIENT
  Sex: Male

DRUGS (2)
  1. FORTEO [Suspect]
     Indication: OSTEOPOROSIS
     Dosage: 20 UG
     Dates: start: 20050211
  2. FORTEO [Concomitant]

REACTIONS (3)
  - EMPHYSEMA [None]
  - RESPIRATORY DISORDER [None]
  - RESPIRATORY FAILURE [None]
